FAERS Safety Report 13595832 (Version 1)
Quarter: 2017Q2

REPORT INFORMATION
  Report Type: Spontaneous
  Country: US (occurrence: US)
  Receive Date: 20170531
  Receipt Date: 20170531
  Transmission Date: 20170830
  Serious: No
  Sender: FDA-Public Use
  Company Number: US-JNJFOC-20170505941

PATIENT
  Age: 9 Decade
  Sex: Female

DRUGS (2)
  1. DIGESTIVE ADVANTAGE PROBIOTIC [Concomitant]
     Indication: GASTROINTESTINAL DISORDER
     Route: 065
  2. TYLENOL EXTRA STRENGTH [Suspect]
     Active Substance: ACETAMINOPHEN
     Indication: ARTHRALGIA
     Route: 048

REACTIONS (2)
  - Manufacturing materials issue [Unknown]
  - Abdominal discomfort [Recovered/Resolved]
